FAERS Safety Report 10153967 (Version 1)
Quarter: 2014Q2

REPORT INFORMATION
  Report Type: Spontaneous
  Country: US (occurrence: US)
  Receive Date: 20140506
  Receipt Date: 20140506
  Transmission Date: 20141212
  Serious: No
  Sender: FDA-Public Use
  Company Number: US-SHIRE-US201401674

PATIENT
  Age: 14 Year
  Sex: Female

DRUGS (2)
  1. VYVANSE [Suspect]
     Indication: ATTENTION DEFICIT/HYPERACTIVITY DISORDER
     Dosage: 120 MG (TWO 60 MG), 1X/DAY:QD (IN THE MORNING)
     Route: 048
     Dates: start: 201404, end: 201404
  2. VYVANSE [Suspect]
     Dosage: 60 MG (TWO 30 MG), 1X/DAY:QD (IN THE MORNING)
     Route: 048
     Dates: end: 201404

REACTIONS (2)
  - Urinary tract infection [Unknown]
  - Accidental overdose [Recovered/Resolved]
